FAERS Safety Report 9661811 (Version 1)
Quarter: 2013Q4

REPORT INFORMATION
  Report Type: Spontaneous
  Country: US (occurrence: US)
  Receive Date: 20131031
  Receipt Date: 20131031
  Transmission Date: 20140711
  Serious: No
  Sender: FDA-Public Use
  Company Number: US-PURDUE-USA-2010-0056489

PATIENT
  Sex: Male

DRUGS (2)
  1. OXYCONTIN (NDA 22-272) [Suspect]
     Indication: NERVE INJURY
     Dosage: 40 MG, DAILY
     Route: 048
     Dates: start: 20101116, end: 20101116
  2. OXYCONTIN (NDA 22-272) [Suspect]
     Indication: BACK PAIN

REACTIONS (3)
  - Pain [Unknown]
  - Malaise [Unknown]
  - Pruritus [Unknown]
